FAERS Safety Report 5475596-1 (Version None)
Quarter: 2007Q4

REPORT INFORMATION
  Report Type: 
  Country: None (occurrence: None)
  Receive Date: 20071003
  Receipt Date: 20070127
  Transmission Date: 20080405
  Serious: No
  Sender: FDA-Public Use
  Company Number: US-KINGPHARMUSA00001-K200700104

PATIENT

DRUGS (5)
  1. SONATA [Suspect]
     Indication: INSOMNIA
     Route: 048
     Dates: start: 20061201, end: 20061201
  2. WELLBUTRIN [Concomitant]
     Indication: HYPERTENSION
     Route: 048
  3. TOPAMAX [Concomitant]
     Indication: TREMOR
     Route: 048
  4. FOSAMAX [Concomitant]
     Indication: OSTEOPOROSIS
     Route: 048
  5. DIOVAN HCT [Concomitant]
     Indication: HYPERTENSION
     Route: 048

REACTIONS (2)
  - DRUG INEFFECTIVE [None]
  - NIGHTMARE [None]
